FAERS Safety Report 25295815 (Version 2)
Quarter: 2025Q2

REPORT INFORMATION
  Report Type: Spontaneous
  Country: US (occurrence: US)
  Receive Date: 20250511
  Receipt Date: 20250522
  Transmission Date: 20250716
  Serious: No
  Sender: SANOFI AVENTIS
  Company Number: US-SA-2025SA132508

PATIENT
  Sex: Male
  Weight: 106 kg

DRUGS (2)
  1. DUPIXENT [Suspect]
     Active Substance: DUPILUMAB
     Indication: Dermatitis atopic
     Dosage: 300 MG, QOW
     Route: 058
  2. XEOMIN [Concomitant]
     Active Substance: INCOBOTULINUMTOXINA

REACTIONS (5)
  - Visual impairment [Unknown]
  - Drug hypersensitivity [Unknown]
  - Eye swelling [Unknown]
  - Swelling face [Unknown]
  - Rash [Unknown]
